FAERS Safety Report 7620715-1 (Version None)
Quarter: 2011Q3

REPORT INFORMATION
  Report Type: 
  Country: None (occurrence: None)
  Receive Date: 20110719
  Receipt Date: 20110713
  Transmission Date: 20111222
  Serious: Yes (Life-Threatening, Other)
  Sender: FDA-Public Use
  Company Number: CO-GLAXOSMITHKLINE-A0937178A

PATIENT
  Age: 47 Year
  Sex: Female
  Weight: 45 kg

DRUGS (3)
  1. TYKERB [Suspect]
     Indication: BREAST CANCER METASTATIC
     Dosage: 1250MGD PER DAY
     Route: 048
     Dates: start: 20100801, end: 20110712
  2. ONDANSETRON [Concomitant]
     Indication: VOMITING
     Route: 048
     Dates: start: 20100801
  3. XELODA [Suspect]
     Indication: BREAST CANCER METASTATIC
     Dosage: 1000MGM2 PER DAY
     Route: 048
     Dates: start: 20100801, end: 20110712

REACTIONS (13)
  - HAEMORRHAGE [None]
  - MUCOSAL INFLAMMATION [None]
  - RASH [None]
  - THROMBOCYTOPENIA [None]
  - DIARRHOEA [None]
  - PIGMENTATION DISORDER [None]
  - SKIN TOXICITY [None]
  - SKIN EXFOLIATION [None]
  - ONYCHOMADESIS [None]
  - DISABILITY [None]
  - PALMAR-PLANTAR ERYTHRODYSAESTHESIA SYNDROME [None]
  - NAIL INFECTION [None]
  - OEDEMA PERIPHERAL [None]
